FAERS Safety Report 7869586-9 (Version None)
Quarter: 2011Q4

REPORT INFORMATION
  Report Type: 
  Country: None (occurrence: None)
  Receive Date: 20111028
  Receipt Date: 20110105
  Transmission Date: 20120403
  Serious: No
  Sender: FDA-Public Use
  Company Number: US-AMGEN-USASP2011000564

PATIENT
  Sex: Female

DRUGS (2)
  1. ENBREL [Suspect]
     Indication: RHEUMATOID ARTHRITIS
     Dosage: 50 MG, QWK
     Dates: start: 20070615
  2. HUMIRA [Concomitant]
     Dosage: UNK
     Dates: start: 20100601

REACTIONS (7)
  - MUSCULOSKELETAL STIFFNESS [None]
  - DRUG EFFECT DECREASED [None]
  - PAIN IN EXTREMITY [None]
  - INFLAMMATION [None]
  - FATIGUE [None]
  - NODULE [None]
  - JOINT STIFFNESS [None]
